FAERS Safety Report 22240461 (Version 1)
Quarter: 2023Q2

REPORT INFORMATION
  Report Type: Spontaneous
  Country: US (occurrence: None)
  Receive Date: 20230421
  Receipt Date: 20230421
  Transmission Date: 20230722
  Serious: Yes (Life-Threatening)
  Sender: FDA-Public Use
  Company Number: None

PATIENT
  Age: 35 Year
  Sex: Female
  Weight: 67.9 kg

DRUGS (3)
  1. LAMOTRIGINE [Suspect]
     Active Substance: LAMOTRIGINE
     Indication: Bipolar disorder
     Dosage: FREQUENCY : DAILY;?
     Route: 048
     Dates: start: 20230310, end: 20230418
  2. LAMOTRIGINE [Concomitant]
     Active Substance: LAMOTRIGINE
     Dates: start: 20230310, end: 20230418
  3. Palipelidone [Concomitant]
     Dates: start: 20230310, end: 20230418

REACTIONS (6)
  - Stevens-Johnson syndrome [None]
  - Oral pain [None]
  - Eye pain [None]
  - Toxic epidermal necrolysis [None]
  - Skin exfoliation [None]
  - Eye disorder [None]

NARRATIVE: CASE EVENT DATE: 20230322
